FAERS Safety Report 19753174 (Version 3)
Quarter: 2023Q1

REPORT INFORMATION
  Report Type: Other
  Country: CA (occurrence: None)
  Receive Date: 20210827
  Receipt Date: 20230228
  Transmission Date: 20230418
  Serious: Yes (Hospitalization)
  Sender: FDA-Public Use
  Company Number: CA-ROCHE-2084400

PATIENT
  Sex: Male
  Weight: 88.5 kg

DRUGS (27)
  1. RITUXAN [Suspect]
     Active Substance: RITUXIMAB
     Indication: Lupus nephritis
     Dosage: LAST RITUXAN INFUSION WAS RECEIVED ON 19/AUG/2021?DAY 1,15. NOT ALL PIRS RECEIVED
     Route: 042
     Dates: start: 20100817, end: 20180309
  2. RITUXAN [Suspect]
     Active Substance: RITUXIMAB
     Dosage: RECEIVED OUTSIDE OF RPAP; DETAILS NOT KNOWN
     Route: 042
     Dates: start: 20070101
  3. RITUXAN [Suspect]
     Active Substance: RITUXIMAB
     Dosage: DAY 1, DAY 15. NOT ALL PIRS RECEIVED. DOSE NOTED ACCORDING TO PRESCRIPTIONS RECEIVED
     Route: 042
     Dates: start: 20200311, end: 20200325
  4. RITUXAN [Suspect]
     Active Substance: RITUXIMAB
     Dosage: SINGLE INFUSIONS. NOT ALL PIRS RECEIVED. DOSE NOTED ACCORDING TO PRESCRIPTIONS RECEIVED
     Route: 042
     Dates: start: 20210528, end: 20210819
  5. MYFORTIC [Suspect]
     Active Substance: MYCOPHENOLATE SODIUM
     Indication: Product used for unknown indication
     Dosage: ON HOLD
     Route: 065
  6. ACETAMINOPHEN [Concomitant]
     Active Substance: ACETAMINOPHEN
     Indication: Premedication
     Route: 048
  7. DIPHENHYDRAMINE [Concomitant]
     Active Substance: DIPHENHYDRAMINE
     Indication: Premedication
     Route: 048
  8. METHYLPREDNISOLONE [Concomitant]
     Active Substance: METHYLPREDNISOLONE
     Indication: Premedication
     Route: 042
  9. PREDNISONE [Concomitant]
     Active Substance: PREDNISONE
  10. AMLODIPINE [Concomitant]
     Active Substance: AMLODIPINE BESYLATE
  11. FOSAMAX [Concomitant]
     Active Substance: ALENDRONATE SODIUM
     Dates: end: 2015
  12. PLAQUENIL [Concomitant]
     Active Substance: HYDROXYCHLOROQUINE SULFATE
  13. RASILEZ [Concomitant]
     Active Substance: ALISKIREN
  14. PANTOPRAZOLE [Concomitant]
     Active Substance: PANTOPRAZOLE
     Indication: Gastrooesophageal reflux disease
  15. IMURAN [Concomitant]
     Active Substance: AZATHIOPRINE
     Dates: end: 2014
  16. ASPIRIN [Concomitant]
     Active Substance: ASPIRIN
  17. VITAMIN B12 [Concomitant]
     Active Substance: CYANOCOBALAMIN
  18. OMEGA 3 [Concomitant]
     Active Substance: CAPSAICIN
  19. TUMS [Concomitant]
     Active Substance: CALCIUM CARBONATE
  20. ASPIRIN [Concomitant]
     Active Substance: ASPIRIN
  21. BISOPROLOL [Concomitant]
     Active Substance: BISOPROLOL
     Indication: Blood pressure measurement
     Dates: start: 202108
  22. CIALIS [Concomitant]
     Active Substance: TADALAFIL
  23. COLACE [Concomitant]
     Active Substance: DOCUSATE SODIUM
  24. FOSAVANCE [Concomitant]
     Active Substance: ALENDRONATE SODIUM\CHOLECALCIFEROL
  25. NEXIUM [Concomitant]
     Active Substance: ESOMEPRAZOLE MAGNESIUM
  26. TERAZOSIN [Concomitant]
     Active Substance: TERAZOSIN HYDROCHLORIDE
  27. ZYPREXA [Concomitant]
     Active Substance: OLANZAPINE
     Indication: Anxiety

REACTIONS (9)
  - Urticaria [Unknown]
  - Lip swelling [Unknown]
  - Pyrexia [Unknown]
  - Hypotension [Unknown]
  - Blood creatinine increased [Recovering/Resolving]
  - Feeling abnormal [Unknown]
  - Blood pressure increased [Unknown]
  - Pharyngitis [Unknown]
  - Hypersensitivity [Unknown]

NARRATIVE: CASE EVENT DATE: 20180101
